FAERS Safety Report 8072852-8 (Version None)
Quarter: 2012Q1

REPORT INFORMATION
  Report Type: 
  Country: None (occurrence: None)
  Receive Date: 20120126
  Receipt Date: 20120119
  Transmission Date: 20120608
  Serious: Yes (Other)
  Sender: FDA-Public Use
  Company Number: US-PFIZER INC-2012016362

PATIENT
  Sex: Male

DRUGS (3)
  1. NEURONTIN [Suspect]
     Dosage: 300 MG, 3 DAILY
  2. GLUCOTROL [Concomitant]
     Dosage: UNK
  3. METFORMIN [Concomitant]
     Dosage: UNK

REACTIONS (4)
  - HYPOAESTHESIA [None]
  - SKIN LESION [None]
  - TYPE 1 DIABETES MELLITUS [None]
  - IMPAIRED WORK ABILITY [None]
